FAERS Safety Report 5171721-0 (Version None)
Quarter: 2006Q4

REPORT INFORMATION
  Report Type: 
  Country: None (occurrence: None)
  Receive Date: 20061213
  Receipt Date: 20061130
  Transmission Date: 20070319
  Serious: Yes (Hospitalization)
  Sender: FDA-Public Use
  Company Number: DE-ELI_LILLY_AND_COMPANY-DE200612000020

PATIENT
  Age: 87 Year
  Sex: Female

DRUGS (10)
  1. CYMBALTA [Suspect]
     Indication: DEPRESSION
     Dosage: 60 MG, UNK
     Route: 048
     Dates: start: 20061013, end: 20061115
  2. DIAZEPAM [Concomitant]
  3. BENALAPRIL [Concomitant]
  4. TAVOR [Concomitant]
  5. ESIDRIX [Concomitant]
  6. MOXONIDINE [Concomitant]
  7. THOMBRAN [Concomitant]
  8. CORVATON - SLOW RELEASE ^AVENTIS PHARMA^ [Concomitant]
  9. PANTOZOL                                /GFR/ [Concomitant]
  10. BAYOTENSIN [Concomitant]

REACTIONS (1)
  - TRANSAMINASES INCREASED [None]
